FAERS Safety Report 4300626-X (Version None)
Quarter: 2004Q1

REPORT INFORMATION
  Report Type: 
  Country: None (occurrence: None)
  Receive Date: 20040218
  Receipt Date: 20040203
  Transmission Date: 20041129
  Serious: Yes (Hospitalization)
  Sender: FDA-Public Use
  Company Number: 2000013051FR

PATIENT
  Sex: Female
  Weight: 1.6 kg

DRUGS (2)
  1. ADRIAMYCIN PFS [Suspect]
     Indication: BREAST CANCER FEMALE
     Dosage: IV
     Route: 042
     Dates: start: 19991129, end: 19991129
  2. CYCLOPHOSPHAMIDE [Suspect]
     Indication: BREAST CANCER FEMALE
     Dosage: IV
     Route: 042
     Dates: start: 19991129, end: 19991129

REACTIONS (9)
  - ABDOMINAL DISTENSION [None]
  - ANAEMIA NEONATAL [None]
  - CAESAREAN SECTION [None]
  - COMPLICATIONS OF MATERNAL EXPOSURE TO THERAPEUTIC DRUGS [None]
  - DRUG EXPOSURE DURING PREGNANCY [None]
  - FOETAL HEART RATE DISORDER [None]
  - FOETAL MOVEMENTS DECREASED [None]
  - JAUNDICE NEONATAL [None]
  - NEUTROPENIA NEONATAL [None]
